FAERS Safety Report 5121612-6 (Version None)
Quarter: 2006Q4

REPORT INFORMATION
  Report Type: 
  Country: None (occurrence: None)
  Receive Date: 20061003
  Receipt Date: 20060920
  Transmission Date: 20070319
  Serious: Yes (Other)
  Sender: FDA-Public Use
  Company Number: 2006109981

PATIENT
  Age: 40 Year
  Sex: Female

DRUGS (4)
  1. NICORETTE [Suspect]
     Indication: SMOKING CESSATION THERAPY
     Dosage: INHALATION
     Route: 055
     Dates: start: 20060501, end: 20060901
  2. NICORETTE [Suspect]
     Indication: SMOKING CESSATION THERAPY
     Dosage: EVERY MORNING, SUBLINGUAL
     Route: 060
     Dates: start: 20060501, end: 20060901
  3. FLUPHENAZINE DECONATE (FLUPHENAZINE DECANOATE) [Concomitant]
  4. CHLORPROMAZINE [Concomitant]

REACTIONS (12)
  - DIZZINESS [None]
  - DRY MOUTH [None]
  - EPISTAXIS [None]
  - HALLUCINATION, VISUAL [None]
  - HYPERHIDROSIS [None]
  - LOSS OF CONSCIOUSNESS [None]
  - MUSCLE TWITCHING [None]
  - PANIC ATTACK [None]
  - SYNCOPE [None]
  - TREMOR [None]
  - VISION BLURRED [None]
  - VOMITING [None]
